FAERS Safety Report 11075019 (Version 2)
Quarter: 2015Q2

REPORT INFORMATION
  Report Type: Spontaneous
  Country: AT (occurrence: AT)
  Receive Date: 20150429
  Receipt Date: 20150521
  Transmission Date: 20150821
  Serious: Yes (Life-Threatening, Hospitalization, Other)
  Sender: FDA-Public Use
  Company Number: AT-JNJFOC-20150417562

PATIENT
  Age: 79 Year
  Sex: Male

DRUGS (4)
  1. IBUPROFEN. [Suspect]
     Active Substance: IBUPROFEN
     Indication: PAIN
     Dosage: FOR 10 DAYS
     Route: 065
     Dates: start: 2012, end: 2012
  2. ASPIRIN. [Interacting]
     Active Substance: ASPIRIN
     Indication: THROMBOSIS
     Route: 065
     Dates: start: 201210
  3. TICAGRELOR [Suspect]
     Active Substance: TICAGRELOR
     Indication: THROMBOSIS
     Route: 065
  4. TICAGRELOR [Suspect]
     Active Substance: TICAGRELOR
     Indication: THROMBOSIS
     Route: 065
     Dates: start: 201210

REACTIONS (4)
  - Cardiogenic shock [Recovered/Resolved]
  - Therapeutic response decreased [Unknown]
  - Acute myocardial infarction [Recovered/Resolved]
  - Drug interaction [Unknown]

NARRATIVE: CASE EVENT DATE: 2012
